FAERS Safety Report 8148094-4 (Version None)
Quarter: 2012Q1

REPORT INFORMATION
  Report Type: 
  Country: None (occurrence: None)
  Receive Date: 20120218
  Receipt Date: 20110425
  Transmission Date: 20120608
  Serious: No
  Sender: FDA-Public Use
  Company Number: US-ALLERGAN-1105703US

PATIENT
  Age: 35 Year
  Sex: Female

DRUGS (2)
  1. THYROID MEDICATION [Concomitant]
     Indication: THYROID DISORDER
  2. BOTOX COSMETIC [Suspect]
     Indication: SKIN WRINKLING
     Dosage: 10 UNITS, SINGLE
     Route: 030
     Dates: start: 20110415, end: 20110415

REACTIONS (3)
  - HEADACHE [None]
  - INJECTION SITE SWELLING [None]
  - EYE SWELLING [None]
